FAERS Safety Report 11795101 (Version 7)
Quarter: 2018Q1

REPORT INFORMATION
  Report Type: Report from Study
  Country: US (occurrence: US)
  Receive Date: 20151202
  Receipt Date: 20180314
  Transmission Date: 20180508
  Serious: Yes (Hospitalization, Other)
  Sender: FDA-Public Use
  Company Number: US-JNJFOC-20151022467

PATIENT
  Age: 71 Year
  Sex: Male
  Weight: 115 kg

DRUGS (14)
  1. IMBRUVICA [Suspect]
     Active Substance: IBRUTINIB
     Indication: CHRONIC LYMPHOCYTIC LEUKAEMIA
     Route: 048
     Dates: start: 20140709, end: 20141015
  2. IMBRUVICA [Suspect]
     Active Substance: IBRUTINIB
     Indication: CHRONIC LYMPHOCYTIC LEUKAEMIA
     Route: 048
     Dates: start: 20151108
  3. AMIODARONE [Concomitant]
     Active Substance: AMIODARONE
     Indication: ATRIAL FIBRILLATION
     Dates: start: 2015
  4. HYDROCHLOROTHIAZIDE. [Concomitant]
     Active Substance: HYDROCHLOROTHIAZIDE
     Dates: end: 2015
  5. IMBRUVICA [Suspect]
     Active Substance: IBRUTINIB
     Indication: CHRONIC LYMPHOCYTIC LEUKAEMIA
     Route: 048
     Dates: start: 20140707
  6. TAMSULOSIN [Concomitant]
     Active Substance: TAMSULOSIN
     Dosage: 1 TAB
  7. ASPIRIN. [Concomitant]
     Active Substance: ASPIRIN
     Dates: end: 20150929
  8. ATORVASTATIN [Concomitant]
     Active Substance: ATORVASTATIN
  9. IMBRUVICA [Suspect]
     Active Substance: IBRUTINIB
     Indication: CHRONIC LYMPHOCYTIC LEUKAEMIA
     Route: 048
     Dates: start: 201411
  10. IMBRUVICA [Suspect]
     Active Substance: IBRUTINIB
     Indication: CHRONIC LYMPHOCYTIC LEUKAEMIA
     Route: 048
     Dates: start: 20141016, end: 20151008
  11. ESOMEPRAZOLE [Concomitant]
     Active Substance: ESOMEPRAZOLE
  12. AMIODARONE [Concomitant]
     Active Substance: AMIODARONE
     Indication: ATRIAL FIBRILLATION
     Dates: start: 20141210, end: 20150629
  13. AMIODARONE [Concomitant]
     Active Substance: AMIODARONE
     Indication: ATRIAL FIBRILLATION
     Dosage: TAPERING DOSE
     Dates: start: 20150630, end: 2015
  14. TYLENOL [Concomitant]
     Active Substance: ACETAMINOPHEN

REACTIONS (21)
  - Osteoarthritis [Unknown]
  - Atrial fibrillation [Unknown]
  - Insomnia [Unknown]
  - Dry mouth [Not Recovered/Not Resolved]
  - Productive cough [Recovered/Resolved]
  - Dysphagia [Recovered/Resolved]
  - Platelet count decreased [Unknown]
  - Anxiety [Not Recovered/Not Resolved]
  - Epistaxis [Unknown]
  - Oral pain [Recovered/Resolved]
  - Haemorrhage [Recovering/Resolving]
  - Incorrect dose administered [Recovered/Resolved]
  - Ecchymosis [Unknown]
  - Cervical spinal stenosis [Recovering/Resolving]
  - Dermatitis acneiform [Not Recovered/Not Resolved]
  - Headache [Not Recovered/Not Resolved]
  - Rash [Not Recovered/Not Resolved]
  - Muscle spasms [Unknown]
  - Increased tendency to bruise [Not Recovered/Not Resolved]
  - Contusion [Not Recovered/Not Resolved]
  - Off label use [Recovered/Resolved]

NARRATIVE: CASE EVENT DATE: 201407
